FAERS Safety Report 23569802 (Version 1)
Quarter: 2024Q1

REPORT INFORMATION
  Report Type: Spontaneous
  Country: JP (occurrence: JP)
  Receive Date: 20240227
  Receipt Date: 20240227
  Transmission Date: 20240410
  Serious: Yes (Hospitalization, Other)
  Sender: FDA-Public Use
  Company Number: JP-DSJP-DSJ-2024-108209

PATIENT
  Age: 84 Year
  Sex: Female

DRUGS (11)
  1. EDOXABAN TOSYLATE [Suspect]
     Active Substance: EDOXABAN TOSYLATE
     Indication: Cerebral infarction
     Dosage: UNK
     Route: 065
  2. TRANSAMIN [Suspect]
     Active Substance: TRANEXAMIC ACID
     Indication: Product used for unknown indication
     Dosage: 1 G
     Route: 065
  3. TRANSAMIN [Suspect]
     Active Substance: TRANEXAMIC ACID
     Dosage: 1 G
     Route: 065
  4. ANDEXANET ALFA [Suspect]
     Active Substance: ANDEXANET ALFA
     Indication: Procoagulant therapy
     Dosage: 400MG/DAY
     Route: 065
  5. HEPARIN [Concomitant]
     Active Substance: HEPARIN SODIUM
     Dosage: 300IU/KG/DAY
     Route: 065
  6. HEPARIN [Concomitant]
     Active Substance: HEPARIN SODIUM
     Dosage: 100IU/KG/DAY
     Route: 065
  7. HEPARIN [Concomitant]
     Active Substance: HEPARIN SODIUM
     Dosage: 100IU/KG/DAY
     Route: 065
  8. NAFAMOSTAT MESYLATE [Concomitant]
     Active Substance: NAFAMOSTAT MESYLATE
     Indication: Heparin resistance
     Dosage: 10MG/DAY
     Route: 042
  9. NAFAMOSTAT MESYLATE [Concomitant]
     Active Substance: NAFAMOSTAT MESYLATE
     Dosage: 20-30MG/HR
     Route: 041
  10. PROTAMINE [Concomitant]
     Active Substance: PROTAMINE
     Dosage: 200MG/DAY
     Route: 065
  11. FIBRINOGEN [Concomitant]
     Active Substance: FIBRINOGEN HUMAN
     Dosage: 1G/DAY
     Route: 065

REACTIONS (3)
  - Aortic dissection [Unknown]
  - Haemorrhage [Unknown]
  - Heparin resistance [Unknown]
